FAERS Safety Report 6341091-0 (Version None)
Quarter: 2009Q3

REPORT INFORMATION
  Report Type: 
  Country: None (occurrence: None)
  Receive Date: 20090904
  Receipt Date: 20090827
  Transmission Date: 20100115
  Serious: Yes (Other)
  Sender: FDA-Public Use
  Company Number: B0590592A

PATIENT
  Age: 26 Year
  Sex: Female

DRUGS (1)
  1. LAMICTAL [Suspect]
     Indication: EPILEPSY
     Dosage: 225MG TWICE PER DAY
     Route: 048
     Dates: start: 20080701

REACTIONS (5)
  - ATAXIA [None]
  - DEPRESSED LEVEL OF CONSCIOUSNESS [None]
  - DIZZINESS [None]
  - NAUSEA [None]
  - UNRESPONSIVE TO STIMULI [None]
